FAERS Safety Report 24220649 (Version 1)
Quarter: 2024Q3

REPORT INFORMATION
  Report Type: Spontaneous
  Country: US (occurrence: US)
  Receive Date: 20240818
  Receipt Date: 20240818
  Transmission Date: 20241016
  Serious: No
  Sender: DR REDDYS
  Company Number: None

PATIENT
  Age: 5 Decade
  Sex: Female

DRUGS (2)
  1. BUPRENORPHINE\NALOXONE [Suspect]
     Active Substance: BUPRENORPHINE\NALOXONE
     Indication: Drug use disorder
     Dosage: BUPRENORPHINE/NALOXONE 4-1 MG TWICE PER DAY
     Route: 060
  2. OXYCODONE [Concomitant]
     Active Substance: OXYCODONE
     Indication: Product used for unknown indication
     Dosage: NON-PRESCRIBED
     Route: 048

REACTIONS (2)
  - Anxiety [Recovered/Resolved]
  - Nausea [Recovered/Resolved]
